FAERS Safety Report 26096546 (Version 2)
Quarter: 2025Q4

REPORT INFORMATION
  Report Type: Spontaneous
  Country: US (occurrence: US)
  Receive Date: 20251127
  Receipt Date: 20251210
  Transmission Date: 20260118
  Serious: Yes (Hospitalization)
  Sender: TEVA
  Company Number: US-TEVA-VS-3394754

PATIENT
  Age: 11 Year
  Sex: Male

DRUGS (3)
  1. CLONIDINE [Suspect]
     Active Substance: CLONIDINE
     Indication: Attention deficit hyperactivity disorder
     Route: 065
  2. GUANFACINE [Suspect]
     Active Substance: GUANFACINE
     Indication: Attention deficit hyperactivity disorder
     Route: 065
  3. LISDEXAMFETAMINE [Suspect]
     Active Substance: LISDEXAMFETAMINE
     Indication: Attention deficit hyperactivity disorder
     Route: 065

REACTIONS (4)
  - Withdrawal syndrome [Recovering/Resolving]
  - Sinus tachycardia [Recovering/Resolving]
  - Hypertension [Recovering/Resolving]
  - Hypertensive urgency [Recovering/Resolving]
